FAERS Safety Report 22988156 (Version 2)
Quarter: 2023Q4

REPORT INFORMATION
  Report Type: Spontaneous
  Country: FR (occurrence: None)
  Receive Date: 20230926
  Receipt Date: 20231009
  Transmission Date: 20240110
  Serious: Yes (Hospitalization)
  Sender: FDA-Public Use
  Company Number: FR-ROCHE-3428760

PATIENT
  Age: 25 Year
  Sex: Male
  Weight: 66 kg

DRUGS (4)
  1. PEGASYS [Suspect]
     Active Substance: PEGINTERFERON ALFA-2A
     Indication: Polycythaemia vera
     Dosage: 135 MCG/0.5 ML
     Route: 058
     Dates: start: 2018, end: 202211
  2. BISOPROLOL [Concomitant]
     Active Substance: BISOPROLOL\BISOPROLOL FUMARATE
     Route: 048
     Dates: start: 202204
  3. RAMIPRIL [Concomitant]
     Active Substance: RAMIPRIL
     Route: 048
  4. FLUINDIONE [Concomitant]
     Active Substance: FLUINDIONE
     Route: 048

REACTIONS (4)
  - Pleural effusion [Recovered/Resolved with Sequelae]
  - Organising pneumonia [Recovered/Resolved with Sequelae]
  - Myocarditis [Recovered/Resolved]
  - Off label use [Unknown]

NARRATIVE: CASE EVENT DATE: 20220401
